FAERS Safety Report 11409491 (Version 1)
Quarter: 2015Q3

REPORT INFORMATION
  Report Type: Spontaneous
  Country: GB (occurrence: GB)
  Receive Date: 20150824
  Receipt Date: 20150824
  Transmission Date: 20151125
  Serious: Yes (Disabling)
  Sender: FDA-Public Use
  Company Number: GB-AUROBINDO-AUR-APL-2015-07215

PATIENT
  Age: 69 Year
  Sex: Female
  Weight: 77 kg

DRUGS (9)
  1. VENLAFAXINE 75MG [Suspect]
     Active Substance: VENLAFAXINE HYDROCHLORIDE
     Indication: DEPRESSION
     Dosage: 75 MG, ONCE A DAY AT NIGHT
     Route: 048
     Dates: start: 20150717, end: 20150724
  2. VENLAFAXINE 75MG [Suspect]
     Active Substance: VENLAFAXINE HYDROCHLORIDE
     Dosage: 75 MG, TWO TIMES A DAY
     Route: 048
     Dates: start: 20150612, end: 20150717
  3. LANSOPRAZOLE. [Concomitant]
     Active Substance: LANSOPRAZOLE
     Indication: GASTROOESOPHAGEAL REFLUX DISEASE
     Dosage: 30 MG, CONTINUING
     Route: 048
  4. WARFARIN [Concomitant]
     Active Substance: WARFARIN
     Indication: ATRIAL FIBRILLATION
     Dosage: VARIABLE - CONTINUING
     Route: 048
  5. LINAGLIPTIN [Concomitant]
     Active Substance: LINAGLIPTIN
     Indication: TYPE 2 DIABETES MELLITUS
     Dosage: 5 MG, ONCE A DAY CONTINUING - MORNING
     Route: 048
  6. VENLAFAXINE 75MG [Suspect]
     Active Substance: VENLAFAXINE HYDROCHLORIDE
     Dosage: 37.5 MG, TWO TIMES A DAY
     Route: 048
     Dates: start: 20150526, end: 20150612
  7. METFORMIN [Concomitant]
     Active Substance: METFORMIN HYDROCHLORIDE
     Indication: TYPE 2 DIABETES MELLITUS
     Dosage: 1 G, TWO TIMES A DAY CONTINUING
     Route: 048
  8. RAMIPRIL. [Concomitant]
     Active Substance: RAMIPRIL
     Indication: HYPERTENSION
     Dosage: 2.5 G, ONCE A DAY MORNING
     Route: 065
  9. AMIODARONE [Concomitant]
     Active Substance: AMIODARONE
     Indication: ATRIAL FIBRILLATION
     Dosage: 200 MG, ONCE A DAY CONTINUING - MORNING
     Route: 048

REACTIONS (4)
  - Abnormal behaviour [Recovered/Resolved]
  - Ataxia [Recovered/Resolved]
  - Confusional state [Recovered/Resolved]
  - Aphasia [Recovered/Resolved]

NARRATIVE: CASE EVENT DATE: 20150626
